FAERS Safety Report 7219164-X (Version None)
Quarter: 2011Q1

REPORT INFORMATION
  Report Type: 
  Country: None (occurrence: None)
  Receive Date: 20110111
  Receipt Date: 20101229
  Transmission Date: 20110831
  Serious: Yes (Hospitalization, Other)
  Sender: FDA-Public Use
  Company Number: JP-CELGENEUS-087-21880-11010150

PATIENT
  Sex: Female

DRUGS (14)
  1. FLUCONAZOLE [Concomitant]
     Indication: PROPHYLAXIS
     Route: 048
     Dates: end: 20101114
  2. FLUCONAZOLE [Concomitant]
     Route: 048
     Dates: start: 20101124, end: 20101130
  3. FAMOTIDINE [Concomitant]
     Indication: PROPHYLAXIS
     Route: 048
     Dates: end: 20101114
  4. METHYCOBAL [Concomitant]
     Route: 048
     Dates: start: 20101124, end: 20101130
  5. PRODIF [Concomitant]
     Indication: PROPHYLAXIS
     Route: 051
     Dates: start: 20101115, end: 20101123
  6. ADEFURONIC [Suspect]
     Route: 048
     Dates: end: 20101114
  7. BAKTAR [Concomitant]
     Indication: PROPHYLAXIS
     Route: 048
     Dates: end: 20101130
  8. LENADEX [Suspect]
     Indication: MULTIPLE MYELOMA
     Route: 048
     Dates: start: 20101109, end: 20101112
  9. ALOSITOL [Concomitant]
     Indication: PROPHYLAXIS
     Route: 048
     Dates: end: 20101114
  10. ASPIRIN [Suspect]
     Route: 048
     Dates: start: 20101124, end: 20101130
  11. METHYCOBAL [Concomitant]
     Route: 048
     Dates: end: 20101114
  12. GOSHA-JINKI-GAN [Concomitant]
     Route: 048
     Dates: end: 20101114
  13. REVLIMID [Suspect]
     Indication: MULTIPLE MYELOMA
     Route: 048
     Dates: start: 20101109, end: 20101114
  14. ASPIRIN [Suspect]
     Indication: PROPHYLAXIS
     Route: 048
     Dates: start: 20101109, end: 20101114

REACTIONS (2)
  - INTESTINAL ULCER [None]
  - GASTROINTESTINAL HAEMORRHAGE [None]
